FAERS Safety Report 6924783-1 (Version None)
Quarter: 2010Q3

REPORT INFORMATION
  Report Type: 
  Country: None (occurrence: None)
  Receive Date: 20100816
  Receipt Date: 20100806
  Transmission Date: 20110219
  Serious: No
  Sender: FDA-Public Use
  Company Number: US-BIOGENIDEC-2010BI027358

PATIENT
  Sex: Male

DRUGS (2)
  1. AVONEX [Suspect]
     Indication: MULTIPLE SCLEROSIS
     Route: 030
     Dates: start: 20010206, end: 20010327
  2. AVONEX [Suspect]
     Route: 030
     Dates: start: 20020827

REACTIONS (3)
  - DEPRESSION [None]
  - DYSPHONIA [None]
  - OPTIC NERVE INJURY [None]
